FAERS Safety Report 9379460 (Version 2)
Quarter: 2013Q3

REPORT INFORMATION
  Report Type: Spontaneous
  Country: BR (occurrence: BR)
  Receive Date: 20130702
  Receipt Date: 20130709
  Transmission Date: 20140515
  Serious: Yes (Other)
  Sender: FDA-Public Use
  Company Number: BR-AMGEN-BRASP2013004076

PATIENT
  Age: 70 Year
  Sex: Female
  Weight: 54 kg

DRUGS (6)
  1. ENBREL [Suspect]
     Indication: RHEUMATOID ARTHRITIS
     Dosage: 50 MG, 1X/WEEK
     Route: 058
     Dates: start: 201212
  2. ENBREL [Suspect]
     Dosage: UNK
     Route: 065
  3. LOSARTAN [Concomitant]
     Indication: HYPERTENSION
     Dosage: 50 MG, 1X/DAY
  4. PREDNISONE [Concomitant]
     Indication: ARTHRITIS
     Dosage: STRENGH 5MG AT 1 CP ( UNSPECIFIED IF TABLET OR CAPSULE) PER DAY
  5. PREDNISONE [Concomitant]
     Indication: RHEUMATOID ARTHRITIS
  6. METHOTREXATE [Concomitant]
     Dosage: STRENGTH 2.5MG, AT 2 CP (UNSPECIFIED IF TABLET OR CAPSULE) ON MONDAY AND TUESDAY

REACTIONS (8)
  - Rheumatoid arthritis [Unknown]
  - Swelling [Not Recovered/Not Resolved]
  - Anxiety [Unknown]
  - Drug ineffective [Unknown]
  - Injection site haematoma [Unknown]
  - Injection site pruritus [Unknown]
  - Injection site reaction [Not Recovered/Not Resolved]
  - Injection site erythema [Not Recovered/Not Resolved]
